FAERS Safety Report 12488452 (Version 1)
Quarter: 2016Q2

REPORT INFORMATION
  Report Type: Report from Study
  Country: US (occurrence: US)
  Receive Date: 20160622
  Receipt Date: 20160622
  Transmission Date: 20160815
  Serious: Yes (Other)
  Sender: FDA-Public Use
  Company Number: US-AMGEN-USASL2016079192

PATIENT
  Age: 84 Year
  Sex: Female

DRUGS (1)
  1. ENBREL [Suspect]
     Active Substance: ETANERCEPT
     Indication: RHEUMATOID ARTHRITIS
     Dosage: 50 MG, QWK
     Route: 065
     Dates: start: 20160606

REACTIONS (8)
  - Rheumatoid arthritis [Unknown]
  - Drug hypersensitivity [Unknown]
  - Pain [Unknown]
  - Bone pain [Unknown]
  - Nausea [Unknown]
  - Adverse drug reaction [Unknown]
  - Asthenia [Unknown]
  - No therapeutic response [Unknown]

NARRATIVE: CASE EVENT DATE: 201606
